FAERS Safety Report 9397419 (Version 1)
Quarter: 2013Q3

REPORT INFORMATION
  Report Type: Spontaneous
  Country: US (occurrence: None)
  Receive Date: 20130711
  Receipt Date: 20130711
  Transmission Date: 20140515
  Serious: No
  Sender: FDA-Public Use
  Company Number: None

PATIENT
  Age: 47 Year
  Sex: Female
  Weight: 97.07 kg

DRUGS (6)
  1. OMEPRAZOLE [Suspect]
     Indication: GASTROOESOPHAGEAL REFLUX DISEASE
     Dosage: 1 CAPSULE DAILY BY MOUTH
     Route: 048
     Dates: start: 201311, end: 20131210
  2. AVAPRO [Concomitant]
  3. HYDROCHLOROTHIAZIDE [Concomitant]
  4. LANSOPRAZOLE [Concomitant]
  5. MOBIC [Concomitant]
  6. ACETAMINOPHEN SOD [Concomitant]

REACTIONS (2)
  - Product substitution issue [None]
  - Condition aggravated [None]
